FAERS Safety Report 16565051 (Version 1)
Quarter: 2019Q3

REPORT INFORMATION
  Report Type: Other
  Country: US (occurrence: US)
  Receive Date: 20190712
  Receipt Date: 20190712
  Transmission Date: 20191004
  Serious: Yes (Other)
  Sender: FDA-Public Use
  Company Number: US-FDC LIMITED-2070716

PATIENT
  Age: 90 Year
  Sex: Female

DRUGS (2)
  1. METHOTREXATE. [Suspect]
     Active Substance: METHOTREXATE
     Route: 065
  2. CIPROFLOXACIN. [Suspect]
     Active Substance: CIPROFLOXACIN
     Indication: PSEUDOMONAS INFECTION
     Route: 065

REACTIONS (7)
  - Blood creatinine increased [Recovering/Resolving]
  - Mouth ulceration [Recovering/Resolving]
  - Abdominal discomfort [Recovered/Resolved]
  - Toxicity to various agents [Recovered/Resolved]
  - Psoriasis [Recovering/Resolving]
  - Liver function test increased [Not Recovered/Not Resolved]
  - Platelet count decreased [Recovered/Resolved]
